FAERS Safety Report 10593951 (Version 2)
Quarter: 2014Q4

REPORT INFORMATION
  Report Type: Spontaneous
  Country: US (occurrence: US)
  Receive Date: 20141119
  Receipt Date: 20141202
  Transmission Date: 20150529
  Serious: Yes (Other)
  Sender: FDA-Public Use
  Company Number: US-BAYER-2014-171612

PATIENT
  Sex: Female

DRUGS (3)
  1. BETASERON [Suspect]
     Active Substance: INTERFERON BETA-1B
     Dosage: UNK
  2. REBIF [Suspect]
     Active Substance: INTERFERON BETA-1A
     Dosage: UNK
  3. AVONEX [Suspect]
     Active Substance: INTERFERON BETA-1A
     Dosage: UNK

REACTIONS (3)
  - Central nervous system lesion [None]
  - Multiple sclerosis relapse [None]
  - Hypoaesthesia [None]
